FAERS Safety Report 18446000 (Version 1)
Quarter: 2020Q4

REPORT INFORMATION
  Report Type: Spontaneous
  Country: US (occurrence: US)
  Receive Date: 20201030
  Receipt Date: 20201030
  Transmission Date: 20210114
  Serious: No
  Sender: FDA-Public Use
  Company Number: None

PATIENT
  Sex: Female

DRUGS (1)
  1. PIQRAY [Suspect]
     Active Substance: ALPELISIB
     Indication: HEPATIC CANCER
     Route: 048
     Dates: start: 20200102

REACTIONS (3)
  - Stomatitis [None]
  - Fatigue [None]
  - Hyperglycaemia [None]
